FAERS Safety Report 16767455 (Version 3)
Quarter: 2019Q4

REPORT INFORMATION
  Report Type: Report from Study
  Country: None (occurrence: FR)
  Receive Date: 20190903
  Receipt Date: 20191119
  Transmission Date: 20200122
  Serious: Yes (Hospitalization, Other)
  Sender: FDA-Public Use
  Company Number: FR-ABBVIE-19K-056-2907996-00

PATIENT
  Age: 77 Year
  Sex: Female

DRUGS (1)
  1. DUODOPA [Suspect]
     Active Substance: CARBIDOPA\LEVODOPA
     Indication: PARKINSON^S DISEASE
     Route: 050
     Dates: start: 20190311

REACTIONS (7)
  - Aspiration [Unknown]
  - Behaviour disorder [Unknown]
  - Hospitalisation [Not Recovered/Not Resolved]
  - Stoma site discharge [Unknown]
  - Vomiting [Unknown]
  - Device occlusion [Unknown]
  - Stoma site reaction [Unknown]

NARRATIVE: CASE EVENT DATE: 2019
